FAERS Safety Report 9343315 (Version 2)
Quarter: 2014Q1

REPORT INFORMATION
  Report Type: Spontaneous
  Country: US (occurrence: US)
  Receive Date: 20130612
  Receipt Date: 20140303
  Transmission Date: 20141002
  Serious: Yes (Hospitalization)
  Sender: FDA-Public Use
  Company Number: US-B.I. PHARMACEUTICALS,INC./RIDGEFIELD-2013-BI-16252BP

PATIENT
  Age: 59 Year
  Sex: Female
  Weight: 62.6 kg

DRUGS (7)
  1. PRADAXA [Suspect]
     Indication: PRODUCT USED FOR UNKNOWN INDICATION
     Route: 065
     Dates: start: 20111211, end: 20120224
  2. LANTUS INSULIN [Concomitant]
     Route: 065
  3. METFORMIN [Concomitant]
     Route: 065
  4. METOPROLOL [Concomitant]
     Route: 065
  5. LEVOTHYROXINE [Concomitant]
     Route: 065
     Dates: start: 2004
  6. TRAMADOL [Concomitant]
     Route: 065
     Dates: start: 2004
  7. NYSTATIN CREAM [Concomitant]
     Route: 065
     Dates: start: 201112, end: 201203

REACTIONS (1)
  - Gastrointestinal haemorrhage [Unknown]
